FAERS Safety Report 17308459 (Version 4)
Quarter: 2021Q1

REPORT INFORMATION
  Report Type: Spontaneous
  Country: US (occurrence: US)
  Receive Date: 20200123
  Receipt Date: 20210210
  Transmission Date: 20210419
  Serious: No
  Sender: FDA-Public Use
  Company Number: US-SA-2020SA012232

PATIENT
  Age: 30 Year
  Sex: Female

DRUGS (6)
  1. FERROUS [IRON] [Concomitant]
     Active Substance: IRON
  2. CYCLOSPORINE. [Concomitant]
     Active Substance: CYCLOSPORINE
  3. TRIAMCINOLON [TRIAMCINOLONE] [Concomitant]
     Active Substance: TRIAMCINOLONE
  4. TACROLIMUS. [Concomitant]
     Active Substance: TACROLIMUS
  5. DUPIXENT [Suspect]
     Active Substance: DUPILUMAB
     Indication: DERMATITIS ATOPIC
     Dosage: 300 MG, QOW
     Route: 058
     Dates: start: 20191017
  6. FLUTICASONE. [Concomitant]
     Active Substance: FLUTICASONE

REACTIONS (6)
  - Skin exfoliation [Not Recovered/Not Resolved]
  - Rash [Not Recovered/Not Resolved]
  - Dry eye [Not Recovered/Not Resolved]
  - Dermatitis atopic [Not Recovered/Not Resolved]
  - Eye pruritus [Not Recovered/Not Resolved]
  - Infection [Not Recovered/Not Resolved]

NARRATIVE: CASE EVENT DATE: 202007
